FAERS Safety Report 5252489-6 (Version None)
Quarter: 2007Q1

REPORT INFORMATION
  Report Type: 
  Country: None (occurrence: None)
  Receive Date: 20070301
  Receipt Date: 20061215
  Transmission Date: 20070707
  Serious: Yes (Other)
  Sender: FDA-Public Use
  Company Number: US-BRISTOL-MYERS SQUIBB COMPANY-13616081

PATIENT
  Age: 63 Year
  Sex: Male
  Weight: 57 kg

DRUGS (4)
  1. CETUXIMAB [Suspect]
     Indication: RECTAL CANCER
     Route: 042
     Dates: start: 20060928, end: 20060928
  2. OXALIPLATIN [Concomitant]
  3. MAGNESIUM SULFATE [Concomitant]
     Route: 042
  4. CALCIUM GLUCONATE [Concomitant]
     Route: 042

REACTIONS (5)
  - DIZZINESS [None]
  - HYPOTENSION [None]
  - PRURITUS [None]
  - SINUS TACHYCARDIA [None]
  - UNRESPONSIVE TO STIMULI [None]
